FAERS Safety Report 4605976-5 (Version None)
Quarter: 2005Q1

REPORT INFORMATION
  Report Type: 
  Country: None (occurrence: None)
  Receive Date: 20050311
  Receipt Date: 20050228
  Transmission Date: 20050727
  Serious: Yes (Hospitalization)
  Sender: FDA-Public Use
  Company Number: B0373783A

PATIENT
  Age: 71 Year
  Sex: Female

DRUGS (5)
  1. CIBLOR [Suspect]
     Indication: BRONCHITIS
     Dosage: 1TAB PER DAY
     Route: 048
     Dates: start: 20050103, end: 20050103
  2. KETEK [Concomitant]
     Indication: BRONCHITIS
     Dates: start: 20041226, end: 20050102
  3. FLUDEX [Concomitant]
     Route: 048
  4. SOPROL [Concomitant]
     Indication: BRONCHITIS
  5. ALDACTONE [Concomitant]
     Route: 048

REACTIONS (4)
  - DYSPNOEA [None]
  - HYPERSENSITIVITY [None]
  - RALES [None]
  - RASH [None]
